FAERS Safety Report 9190621 (Version 2)
Quarter: 2013Q2

REPORT INFORMATION
  Report Type: Spontaneous
  Country: US (occurrence: None)
  Receive Date: 20130322
  Receipt Date: 20130416
  Transmission Date: 20140414
  Serious: Yes (Other)
  Sender: FDA-Public Use
  Company Number: SYM-2013-01788

PATIENT
  Age: 60 Year
  Sex: Female

DRUGS (6)
  1. DILTIAZEM [Suspect]
     Indication: BLOOD PRESSURE ABNORMAL
     Dosage: 30 MG, 3 IN 1 D, ORAL
     Route: 048
     Dates: start: 2003
  2. ATORVASTATIN CALCIUM [Suspect]
     Indication: BLOOD PRESSURE ABNORMAL
     Route: 048
     Dates: start: 20130226, end: 20130309
  3. SIMVASTATIN [Suspect]
     Indication: BLOOD CHOLESTEROL ABNORMAL
     Dates: end: 201302
  4. METFORMIN (METFORMIN) (TABLETS) (METFORMIN) [Concomitant]
  5. GLIPIZIDE (GLIPIZIDE) (TABLETS) (GLIPIZIDE) [Concomitant]
  6. ISOSORBIDE MONONITRATE (ISOSORBIDE MONONITRATE) (TABLETS) (ISOSORBIDE MONONITRATE) [Concomitant]

REACTIONS (5)
  - Choking [None]
  - Product size issue [None]
  - Product shape issue [None]
  - Liver disorder [None]
  - Weight decreased [None]
